FAERS Safety Report 11614453 (Version 2)
Quarter: 2015Q4

REPORT INFORMATION
  Report Type: Spontaneous
  Country: US (occurrence: US)
  Receive Date: 20151009
  Receipt Date: 20151027
  Transmission Date: 20160304
  Serious: No
  Sender: FDA-Public Use
  Company Number: US-ASTRAZENECA-2015SE93580

PATIENT
  Age: 70 Year
  Sex: Female
  Weight: 46.3 kg

DRUGS (2)
  1. CRESTOR [Suspect]
     Active Substance: ROSUVASTATIN CALCIUM
     Indication: BLOOD CHOLESTEROL
     Route: 048
     Dates: start: 20150525, end: 20150610
  2. LATANOPROST. [Concomitant]
     Active Substance: LATANOPROST
     Indication: GLAUCOMA

REACTIONS (11)
  - Nervousness [Unknown]
  - Off label use [Unknown]
  - Flatulence [Recovered/Resolved]
  - Abnormal behaviour [Unknown]
  - Dyskinesia [Recovered/Resolved]
  - Nodule [Unknown]
  - Weight decreased [Unknown]
  - Impaired driving ability [Unknown]
  - Rash generalised [Unknown]
  - Pain in extremity [Recovered/Resolved]
  - Muscle twitching [Recovered/Resolved]

NARRATIVE: CASE EVENT DATE: 2015
